FAERS Safety Report 10742565 (Version 1)
Quarter: 2015Q1

REPORT INFORMATION
  Report Type: Report from Study
  Country: US (occurrence: US)
  Receive Date: 20150127
  Receipt Date: 20150127
  Transmission Date: 20150721
  Serious: Yes (Other)
  Sender: FDA-Public Use
  Company Number: US-009507513-1501USA007704

PATIENT
  Age: 64 Year

DRUGS (3)
  1. CYTOXAN [Suspect]
     Active Substance: CYCLOPHOSPHAMIDE
     Indication: PLASMA CELL MYELOMA
     Dosage: 550 MG, ON DAYS 1 AND 8, DURATION: 4 TREATMENTS X 3 CYCLES
     Route: 042
     Dates: start: 20110210, end: 20110428
  2. VELCADE [Suspect]
     Active Substance: BORTEZOMIB
     Indication: PLASMA CELL MYELOMA
     Dosage: 2.39 MG, ON 1,4, 8 AND 11 DAYS, DURATION: 4 TREATMENTS X 3CYCLES
     Route: 042
     Dates: start: 20110210, end: 20110428
  3. DECADRON [Suspect]
     Active Substance: DEXAMETHASONE
     Indication: PLASMA CELL MYELOMA
     Dosage: 4 MG, FREQUENCY: ON DAYS 1, 4, 8 AND 11, DURATION: 4 TREATMENT X 3 CYCLES
     Route: 042
     Dates: start: 20110210, end: 20110428

REACTIONS (3)
  - Leukopenia [Unknown]
  - Plasma cell myeloma [Unknown]
  - Pyrexia [Unknown]

NARRATIVE: CASE EVENT DATE: 20110323
